FAERS Safety Report 8035510-1 (Version None)
Quarter: 2012Q1

REPORT INFORMATION
  Report Type: 
  Country: None (occurrence: None)
  Receive Date: 20120110
  Receipt Date: 20120110
  Transmission Date: 20120608
  Serious: Yes (Death)
  Sender: FDA-Public Use
  Company Number: None

PATIENT
  Sex: Male
  Weight: 82.9 kg

DRUGS (1)
  1. TORISEL [Suspect]
     Indication: PROSTATE CANCER
     Dosage: 25 MG Q WEEK IV
     Route: 042
     Dates: start: 20111130, end: 20111228

REACTIONS (2)
  - PROSTATE CANCER [None]
  - NEOPLASM PROGRESSION [None]
